FAERS Safety Report 15250892 (Version 1)
Quarter: 2018Q3

REPORT INFORMATION
  Report Type: Spontaneous
  Country: US (occurrence: US)
  Receive Date: 20180807
  Receipt Date: 20180807
  Transmission Date: 20181010
  Serious: No
  Sender: FDA-Public Use
  Company Number: US-PERRIGO-18US000905

PATIENT
  Age: 66 Year
  Sex: Female
  Weight: 83.9 kg

DRUGS (2)
  1. MOTRIN IB [Suspect]
     Active Substance: IBUPROFEN
     Indication: INSOMNIA
  2. MOTRIN IB [Suspect]
     Active Substance: IBUPROFEN
     Indication: BACK PAIN
     Dosage: 600 MG, SINGLE
     Route: 048
     Dates: start: 20180122, end: 20180122

REACTIONS (4)
  - Somnolence [Recovered/Resolved]
  - Incorrect dose administered [Recovered/Resolved]
  - Contusion [Recovering/Resolving]
  - Off label use [Recovered/Resolved]

NARRATIVE: CASE EVENT DATE: 20180122
